FAERS Safety Report 21823723 (Version 1)
Quarter: 2023Q1

REPORT INFORMATION
  Report Type: Spontaneous
  Country: US (occurrence: US)
  Receive Date: 20230105
  Receipt Date: 20230105
  Transmission Date: 20230418
  Serious: No
  Sender: FDA-Public Use
  Company Number: US-PFIZER INC-PV202200133115

PATIENT
  Sex: Female

DRUGS (3)
  1. XELJANZ [Suspect]
     Active Substance: TOFACITINIB CITRATE
     Indication: Lichen planopilaris
     Dosage: TAKE 1 PILL BID
  2. XELJANZ [Suspect]
     Active Substance: TOFACITINIB CITRATE
     Dosage: TAKE 1 EVERY OTHER DAY
  3. XELJANZ [Suspect]
     Active Substance: TOFACITINIB CITRATE
     Dosage: 3 PILLS PER WEEK

REACTIONS (3)
  - Off label use [Unknown]
  - Drug effective for unapproved indication [Unknown]
  - Condition aggravated [Unknown]
